FAERS Safety Report 17129657 (Version 1)
Quarter: 2019Q4

REPORT INFORMATION
  Report Type: Spontaneous
  Country: IT (occurrence: IT)
  Receive Date: 20191209
  Receipt Date: 20191209
  Transmission Date: 20200122
  Serious: Yes (Other)
  Sender: FDA-Public Use
  Company Number: IT-MYLANLABS-2019M1119701

PATIENT
  Age: 39 Year
  Sex: Male

DRUGS (1)
  1. PREDNISONE. [Suspect]
     Active Substance: PREDNISONE
     Indication: PULMONARY TOXICITY
     Dosage: 25 MILLIGRAM, QD
     Dates: start: 201808

REACTIONS (3)
  - Varicella zoster pneumonia [Recovered/Resolved]
  - Varicella zoster virus infection [Recovered/Resolved]
  - Acute kidney injury [Unknown]

NARRATIVE: CASE EVENT DATE: 201810
